FAERS Safety Report 23210006 (Version 1)
Quarter: 2023Q4

REPORT INFORMATION
  Report Type: Spontaneous
  Country: DE (occurrence: DE)
  Receive Date: 20231121
  Receipt Date: 20231121
  Transmission Date: 20240109
  Serious: Yes (Other)
  Sender: FDA-Public Use
  Company Number: DE-ALKEM LABORATORIES LIMITED-DE-ALKEM-2023-13783

PATIENT
  Age: 19 Year
  Sex: Female

DRUGS (18)
  1. CLOBAZAM [Suspect]
     Active Substance: CLOBAZAM
     Indication: Petit mal epilepsy
     Dosage: 15 MILLIGRAM
     Route: 065
  2. CLOBAZAM [Suspect]
     Active Substance: CLOBAZAM
     Indication: Generalised tonic-clonic seizure
  3. LACOSAMIDE [Suspect]
     Active Substance: LACOSAMIDE
     Indication: Generalised tonic-clonic seizure
     Dosage: 400 MILLIGRAM
     Route: 065
  4. LACOSAMIDE [Suspect]
     Active Substance: LACOSAMIDE
     Indication: Off label use
     Dosage: UNK (RECHALLENGE)
     Route: 065
  5. LACOSAMIDE [Suspect]
     Active Substance: LACOSAMIDE
     Indication: Petit mal epilepsy
  6. LAMOTRIGINE [Suspect]
     Active Substance: LAMOTRIGINE
     Indication: Petit mal epilepsy
     Dosage: 350 MILLIGRAM
     Route: 065
  7. LAMOTRIGINE [Suspect]
     Active Substance: LAMOTRIGINE
     Indication: Generalised tonic-clonic seizure
     Dosage: 200 MILLIGRAM
     Route: 065
  8. LEVETIRACETAM [Suspect]
     Active Substance: LEVETIRACETAM
     Indication: Petit mal epilepsy
     Dosage: 2500 MILLIGRAM (OFF LABEL)
     Route: 065
  9. LEVETIRACETAM [Suspect]
     Active Substance: LEVETIRACETAM
     Indication: Generalised tonic-clonic seizure
  10. TOPIRAMATE [Suspect]
     Active Substance: TOPIRAMATE
     Indication: Generalised tonic-clonic seizure
     Dosage: 100 MILLIGRAM
     Route: 065
  11. TOPIRAMATE [Suspect]
     Active Substance: TOPIRAMATE
     Indication: Petit mal epilepsy
  12. PERAMPANEL [Suspect]
     Active Substance: PERAMPANEL
     Indication: Petit mal epilepsy
     Dosage: 6 MILLIGRAM
     Route: 065
  13. PERAMPANEL [Suspect]
     Active Substance: PERAMPANEL
     Indication: Generalised tonic-clonic seizure
  14. ETHOSUXIMIDE [Suspect]
     Active Substance: ETHOSUXIMIDE
     Indication: Petit mal epilepsy
     Dosage: 250 MILLIGRAM
     Route: 065
  15. ETHOSUXIMIDE [Suspect]
     Active Substance: ETHOSUXIMIDE
     Indication: Generalised tonic-clonic seizure
     Dosage: 1500 MILLIGRAM
     Route: 065
  16. BRIVIACT [Suspect]
     Active Substance: BRIVARACETAM
     Indication: Petit mal epilepsy
     Dosage: 200 MILLIGRAM
     Route: 065
  17. BRIVIACT [Suspect]
     Active Substance: BRIVARACETAM
     Indication: Generalised tonic-clonic seizure
     Dosage: UNK (RECHALLENGE)
     Route: 065
  18. BRIVIACT [Suspect]
     Active Substance: BRIVARACETAM
     Indication: Off label use

REACTIONS (12)
  - Generalised tonic-clonic seizure [Unknown]
  - Petit mal epilepsy [Unknown]
  - Adverse event [Unknown]
  - Gait disturbance [Unknown]
  - Headache [Unknown]
  - Performance status decreased [Unknown]
  - Paraesthesia [Unknown]
  - Psychotic disorder [Unknown]
  - Visual impairment [Unknown]
  - COVID-19 [Unknown]
  - Off label use [Unknown]
  - Drug ineffective [Unknown]

NARRATIVE: CASE EVENT DATE: 20220401
